FAERS Safety Report 9341260 (Version 1)
Quarter: 2013Q2

REPORT INFORMATION
  Report Type: Report from Study
  Country: DE (occurrence: DE)
  Receive Date: 20130611
  Receipt Date: 20130611
  Transmission Date: 20140414
  Serious: Yes (Life-Threatening, Other)
  Sender: FDA-Public Use
  Company Number: DE-ROCHE-CID000000002222365

PATIENT
  Age: 60 Year
  Sex: Male
  Weight: 79 kg

DRUGS (13)
  1. PEG-INTERFERON ALFA 2A [Suspect]
     Indication: THROMBOCYTOPENIA
     Route: 058
     Dates: start: 20120412
  2. PEG-INTERFERON ALFA 2A [Suspect]
     Dosage: DOSE REDUCED
     Route: 058
     Dates: start: 20121104
  3. PEG-INTERFERON ALFA 2A [Suspect]
     Dosage: DOSE REDUCED
     Route: 065
     Dates: start: 20121111
  4. PEG-INTERFERON ALFA 2A [Suspect]
     Dosage: DOSE INCREASED
     Route: 065
     Dates: start: 20121118, end: 20130120
  5. PEG-INTERFERON ALFA 2A [Suspect]
     Dosage: DOSE REDUCED
     Route: 065
     Dates: start: 20130127
  6. PEG-INTERFERON ALFA 2A [Suspect]
     Dosage: DOSE INCREASED, DATE OF LAST DOSE PRIOR TO SAE: 10/MAR/2013
     Route: 065
     Dates: start: 20130203
  7. RIBAVIRIN [Suspect]
     Indication: THROMBOCYTOPENIA
     Route: 048
     Dates: start: 20120412
  8. E5501 [Suspect]
     Indication: THROMBOCYTOPENIA
     Route: 048
     Dates: start: 20120709, end: 20130310
  9. BISOPROLOL [Concomitant]
     Route: 048
     Dates: start: 20111107
  10. SIMVASTATIN [Concomitant]
     Route: 048
     Dates: start: 20111107
  11. CLOPIDOGREL [Concomitant]
     Route: 048
     Dates: start: 20120402
  12. ATARAX [Concomitant]
     Route: 048
     Dates: start: 20120507
  13. CANDESARTAN [Concomitant]
     Route: 048
     Dates: start: 20120924

REACTIONS (1)
  - Leukopenia [Recovered/Resolved]
